FAERS Safety Report 11136054 (Version 1)
Quarter: 2015Q2

REPORT INFORMATION
  Report Type: Spontaneous
  Country: GB (occurrence: GB)
  Receive Date: 20150526
  Receipt Date: 20150526
  Transmission Date: 20150821
  Serious: Yes (Other)
  Sender: FDA-Public Use
  Company Number: GB-GALDERMA-GB15002855

PATIENT
  Age: 20 Year
  Sex: Female

DRUGS (3)
  1. EFRACEA [Suspect]
     Active Substance: DOXYCYCLINE
     Indication: ACNE
     Route: 048
  2. EFRACEA [Suspect]
     Active Substance: DOXYCYCLINE
     Indication: ROSACEA
  3. AZELAIC ACID [Concomitant]
     Active Substance: AZELAIC ACID

REACTIONS (6)
  - Sinusitis [Recovering/Resolving]
  - Acute sinusitis [Recovering/Resolving]
  - Rhinitis [Recovering/Resolving]
  - Product use issue [Recovering/Resolving]
  - Tooth disorder [Recovering/Resolving]
  - Sinus headache [Recovering/Resolving]
